FAERS Safety Report 14030116 (Version 1)
Quarter: 2017Q4

REPORT INFORMATION
  Report Type: Spontaneous
  Country: FR (occurrence: FR)
  Receive Date: 20171001
  Receipt Date: 20171001
  Transmission Date: 20180321
  Serious: Yes (Hospitalization)
  Sender: FDA-Public Use
  Company Number: FR-009507513-1709FRA013904

PATIENT
  Age: 61 Year
  Sex: Female

DRUGS (9)
  1. AUGMENTIN [Suspect]
     Active Substance: AMOXICILLIN\CLAVULANATE POTASSIUM
     Indication: INFECTION
     Dosage: 3 G, QD
     Route: 048
     Dates: start: 20170910, end: 20170912
  2. PANTOPRAZOLE [Concomitant]
     Active Substance: PANTOPRAZOLE
     Indication: GASTROOESOPHAGEAL REFLUX DISEASE
     Dosage: O20 MG, QD
     Route: 048
     Dates: start: 20170905
  3. ATARAX [Concomitant]
     Active Substance: HYDROXYZINE HYDROCHLORIDE
     Indication: ANXIETY
     Dosage: 25 MG, BID
     Route: 048
     Dates: start: 20170829
  4. SOLUPRED [Concomitant]
     Active Substance: PREDNISOLONE
     Indication: PRODUCT USED FOR UNKNOWN INDICATION
     Dosage: 50 MG, BID
     Route: 048
     Dates: start: 20170829
  5. CYANOCOBALAMIN. [Concomitant]
     Active Substance: CYANOCOBALAMIN
     Indication: VITAMIN B COMPLEX DEFICIENCY
     Dosage: 1 AMPOULE, QD
     Dates: start: 20170906, end: 20170906
  6. DIFFU-K [Concomitant]
     Active Substance: POTASSIUM CHLORIDE
     Indication: HYPOKALAEMIA
     Dosage: 600 MG, TID
     Route: 048
     Dates: start: 20170829
  7. SPECIAFOLDINE [Concomitant]
     Active Substance: FOLIC ACID
     Indication: BLOOD FOLATE DECREASED
     Dosage: 0.4 MG, QD
     Route: 048
     Dates: start: 20170906
  8. STROMECTOL [Suspect]
     Active Substance: IVERMECTIN
     Indication: INFECTION
     Dosage: 12 MG, QD
     Route: 048
     Dates: start: 20170907, end: 20170909
  9. KEPPRA [Concomitant]
     Active Substance: LEVETIRACETAM
     Indication: PRODUCT USED FOR UNKNOWN INDICATION
     Dosage: O500 MG, BID
     Route: 048
     Dates: start: 20170829

REACTIONS (4)
  - Blood alkaline phosphatase increased [Recovering/Resolving]
  - Hepatocellular injury [Recovering/Resolving]
  - Transaminases increased [Recovering/Resolving]
  - Cholestasis [Recovering/Resolving]

NARRATIVE: CASE EVENT DATE: 20170911
